FAERS Safety Report 4785517-2 (Version None)
Quarter: 2005Q4

REPORT INFORMATION
  Report Type: 
  Country: None (occurrence: None)
  Receive Date: 20051003
  Receipt Date: 20050920
  Transmission Date: 20060501
  Serious: Yes (Life-Threatening, Hospitalization, Disabling)
  Sender: FDA-Public Use
  Company Number: US-JNJFOC-20050804855

PATIENT
  Sex: Male
  Weight: 65.77 kg

DRUGS (7)
  1. REMICADE [Suspect]
     Route: 042
  2. REMICADE [Suspect]
     Route: 042
  3. REMICADE [Suspect]
     Route: 042
  4. REMICADE [Suspect]
     Indication: RHEUMATOID ARTHRITIS
     Route: 042
  5. METHOTREXATE [Concomitant]
     Indication: RHEUMATOID ARTHRITIS
  6. PRILOSEC [Concomitant]
  7. ACTONEL [Concomitant]
     Indication: OSTEOPOROSIS

REACTIONS (5)
  - DRUG INEFFECTIVE [None]
  - FASCIITIS [None]
  - LEG AMPUTATION [None]
  - SHOCK [None]
  - STREPTOCOCCAL SEPSIS [None]
